FAERS Safety Report 12580662 (Version 2)
Quarter: 2016Q4

REPORT INFORMATION
  Report Type: Spontaneous
  Country: US (occurrence: US)
  Receive Date: 20160721
  Receipt Date: 20161021
  Transmission Date: 20170207
  Serious: Yes (Disabling, Other)
  Sender: FDA-Public Use
  Company Number: US-TEVA-677205USA

PATIENT
  Sex: Female

DRUGS (1)
  1. PARAGARD T 380A [Suspect]
     Active Substance: COPPER
     Indication: CONTRACEPTION
     Route: 015

REACTIONS (7)
  - Pain [Unknown]
  - Oligomenorrhoea [Unknown]
  - Dyspareunia [Unknown]
  - Discomfort [Unknown]
  - Complication associated with device [Unknown]
  - Bloody discharge [Unknown]
  - Device breakage [Unknown]
